FAERS Safety Report 4882909-8 (Version None)
Quarter: 2005Q4

REPORT INFORMATION
  Report Type: 
  Country: None (occurrence: None)
  Receive Date: 20051201
  Receipt Date: 20050907
  Transmission Date: 20060501
  Serious: No
  Sender: FDA-Public Use
  Company Number: 2005PV001746

PATIENT
  Sex: Female

DRUGS (3)
  1. BYETTA [Suspect]
     Indication: DIABETES MELLITUS
     Dosage: 5 MCG;BID;SC
     Route: 058
     Dates: start: 20050818, end: 20050901
  2. AVANDAMENT [Concomitant]
  3. GLIPIZIDE [Concomitant]

REACTIONS (9)
  - DECREASED APPETITE [None]
  - DERMATITIS ALLERGIC [None]
  - INJECTION SITE PRURITUS [None]
  - INJECTION SITE URTICARIA [None]
  - INSOMNIA [None]
  - NAUSEA [None]
  - PRURITUS [None]
  - STRESS [None]
  - WEIGHT DECREASED [None]
